FAERS Safety Report 6504619-3 (Version None)
Quarter: 2009Q4

REPORT INFORMATION
  Report Type: 
  Country: None (occurrence: None)
  Receive Date: 20091215
  Receipt Date: 20091202
  Transmission Date: 20100525
  Serious: Yes (Hospitalization, Other)
  Sender: FDA-Public Use
  Company Number: 2009AP004903

PATIENT
  Age: 30 Year
  Sex: Male

DRUGS (2)
  1. MYCOPHENOLATE MOFETIL [Suspect]
  2. PREDNISONE [Concomitant]

REACTIONS (5)
  - COLITIS [None]
  - DEHYDRATION [None]
  - DRUG TOXICITY [None]
  - RENAL FAILURE ACUTE [None]
  - WEIGHT DECREASED [None]
